FAERS Safety Report 9422548 (Version 1)
Quarter: 2013Q3

REPORT INFORMATION
  Report Type: Spontaneous
  Country: IT (occurrence: IT)
  Receive Date: 20130726
  Receipt Date: 20130726
  Transmission Date: 20140515
  Serious: Yes (Hospitalization)
  Sender: FDA-Public Use
  Company Number: IT-SANOFI-AVENTIS-2013SA074670

PATIENT
  Age: 93 Year
  Sex: Female

DRUGS (8)
  1. PLAVIX [Suspect]
     Indication: ISCHAEMIC CARDIOMYOPATHY
     Route: 048
     Dates: start: 20130101, end: 20130703
  2. CARDIOASPIRIN [Suspect]
     Indication: ISCHAEMIC CARDIOMYOPATHY
     Route: 065
     Dates: start: 20130101, end: 20130703
  3. CANRENONE [Concomitant]
  4. FUROSEMIDE [Concomitant]
  5. TRAZODONE [Concomitant]
  6. PROMAZINE [Concomitant]
  7. SEROQUEL [Concomitant]
  8. OMEPRAZOLE [Concomitant]

REACTIONS (1)
  - Iron deficiency anaemia [Recovered/Resolved]
